FAERS Safety Report 21715946 (Version 4)
Quarter: 2023Q1

REPORT INFORMATION
  Report Type: Report from Study
  Country: US (occurrence: US)
  Receive Date: 20221212
  Receipt Date: 20230127
  Transmission Date: 20230417
  Serious: Yes (Hospitalization, Other)
  Sender: FDA-Public Use
  Company Number: US-AGIOS-2212US03199

PATIENT
  Sex: Male

DRUGS (1)
  1. MITAPIVAT [Suspect]
     Active Substance: MITAPIVAT
     Indication: Pyruvate kinase deficiency anaemia
     Dosage: 100 MILLIGRAM, QD
     Route: 048
     Dates: start: 20220812

REACTIONS (6)
  - Pneumonia influenzal [Recovering/Resolving]
  - Influenza [Recovering/Resolving]
  - Therapy non-responder [Unknown]
  - Therapy cessation [Unknown]
  - Product dose omission issue [Recovering/Resolving]
  - Haemoglobin decreased [Recovering/Resolving]
